FAERS Safety Report 9723184 (Version 4)
Quarter: 2013Q4

REPORT INFORMATION
  Report Type: Report from Study
  Country: FR (occurrence: FR)
  Receive Date: 20131202
  Receipt Date: 20131218
  Transmission Date: 20140711
  Serious: Yes (Hospitalization)
  Sender: FDA-Public Use
  Company Number: FR-ROCHE-1279649

PATIENT
  Age: 53 Year
  Sex: Female
  Weight: 51 kg

DRUGS (4)
  1. BEVACIZUMAB [Suspect]
     Indication: BREAST CANCER
     Dosage: DATE OF LAST DOSE PRIOR TO SAE 30/OCT/2013
     Route: 042
     Dates: start: 20130327, end: 20130724
  2. BEVACIZUMAB [Suspect]
     Route: 042
     Dates: start: 20130918
  3. CAPECITABINE [Suspect]
     Indication: BREAST CANCER
     Dosage: DATE OF LAST DOSE PRIOR TO SAE 12/NOV/2013
     Route: 048
     Dates: start: 20131009, end: 20131119
  4. LIPOSOMAL DOXORUBICIN [Suspect]
     Indication: BREAST CANCER
     Dosage: DATE OF LAST DOSE PRIOR TO SAE 24/JUL/2013
     Route: 042
     Dates: start: 20130327, end: 20130814

REACTIONS (1)
  - Dyspepsia [Not Recovered/Not Resolved]
